FAERS Safety Report 12945248 (Version 1)
Quarter: 2016Q4

REPORT INFORMATION
  Report Type: Spontaneous
  Country: US (occurrence: US)
  Receive Date: 20161115
  Receipt Date: 20161115
  Transmission Date: 20170207
  Serious: Yes (Hospitalization)
  Sender: FDA-Public Use
  Company Number: None

PATIENT
  Age: 70 Year
  Sex: Male

DRUGS (11)
  1. INLYTA [Suspect]
     Active Substance: AXITINIB
     Indication: RENAL CANCER
     Dosage: 5 TO 10 MG  BID X 14 DAYS
     Route: 048
     Dates: start: 20161021
  2. NYSTATIN. [Concomitant]
     Active Substance: NYSTATIN
  3. MIRTAZAPINE. [Concomitant]
     Active Substance: MIRTAZAPINE
  4. KETOCONAZOLE. [Concomitant]
     Active Substance: KETOCONAZOLE
  5. TRAMADOL. [Concomitant]
     Active Substance: TRAMADOL
  6. TIZANIDINE. [Concomitant]
     Active Substance: TIZANIDINE
  7. PILOCARPINE. [Concomitant]
     Active Substance: PILOCARPINE
  8. MEGESTROL [Concomitant]
     Active Substance: MEGESTROL
  9. AMLODIPINE [Concomitant]
     Active Substance: AMLODIPINE BESYLATE
  10. PANTOPRAZOLE [Concomitant]
     Active Substance: PANTOPRAZOLE SODIUM
  11. TERBINAFINE. [Concomitant]
     Active Substance: TERBINAFINE

REACTIONS (1)
  - Urinary tract infection [None]

NARRATIVE: CASE EVENT DATE: 20161103
